FAERS Safety Report 21111056 (Version 1)
Quarter: 2022Q3

REPORT INFORMATION
  Report Type: Spontaneous
  Country: US (occurrence: None)
  Receive Date: 20220720
  Receipt Date: 20220720
  Transmission Date: 20221026
  Serious: Yes (Other)
  Sender: FDA-Public Use
  Company Number: None

PATIENT
  Age: 68 Year
  Sex: Male
  Weight: 108 kg

DRUGS (10)
  1. XTANDI [Suspect]
     Active Substance: ENZALUTAMIDE
     Indication: Prostate cancer
     Dosage: FREQUENCY : DAILY;?
     Route: 048
  2. ASPIRIN [Concomitant]
     Active Substance: ASPIRIN
  3. Urocit-K 10 mEq [Concomitant]
  4. metoprolol ER 100 mg [Concomitant]
  5. INDAPAMIDE [Concomitant]
     Active Substance: INDAPAMIDE
  6. chlorthalidone 50 mg [Concomitant]
  7. tamsulosin 04 mg [Concomitant]
  8. METFORMIN [Concomitant]
     Active Substance: METFORMIN HYDROCHLORIDE
  9. ATORVASTATIN [Concomitant]
     Active Substance: ATORVASTATIN
  10. Lupron Depot injection (6 month dose) [Concomitant]

REACTIONS (1)
  - Weight increased [None]
